FAERS Safety Report 7014731-0 (Version None)
Quarter: 2010Q3

REPORT INFORMATION
  Report Type: 
  Country: None (occurrence: None)
  Receive Date: 20100927
  Receipt Date: 20100917
  Transmission Date: 20110219
  Serious: Yes (Hospitalization)
  Sender: FDA-Public Use
  Company Number: SE-ROCHE-728279

PATIENT

DRUGS (3)
  1. BEVACIZUMAB [Suspect]
     Indication: BREAST CANCER
     Dosage: FORM: INFUSION; COURSE NUMBER: 5; LAST DOSE PRIOR TO SAE: 08 SEPTEMBER 2010.
     Route: 042
     Dates: start: 20100616
  2. EPIRUBICIN [Suspect]
     Indication: BREAST CANCER
     Dosage: FORM: INFUSION; COURSE NUMBER: 5; LAST DOSE PRIOR TO SAE: 08 SEPTEMBER 2010.
     Route: 042
     Dates: start: 20100616
  3. DOCETAXEL [Suspect]
     Indication: BREAST CANCER
     Dosage: FORM: INFUSION; COURSE NUMBER: 5; LAST DOSE PRIOR TO SAE: 08 SEPTEMBER 2010.
     Route: 042
     Dates: start: 20100616

REACTIONS (3)
  - HYPOMANIA [None]
  - INSOMNIA [None]
  - PSYCHIATRIC SYMPTOM [None]
